FAERS Safety Report 5781253-4 (Version None)
Quarter: 2008Q2

REPORT INFORMATION
  Report Type: 
  Country: None (occurrence: None)
  Receive Date: 20080618
  Receipt Date: 20080603
  Transmission Date: 20081010
  Serious: Yes (Hospitalization)
  Sender: FDA-Public Use
  Company Number: ABNMA-07-0751

PATIENT
  Sex: Female

DRUGS (6)
  1. ABRAXANE [Suspect]
     Indication: BREAST CANCER
     Dosage: EVERY WEEK (80 MG/M2, 3 DOSES RECEIVED PRIOR TO THE EVENT)
     Dates: start: 20070720, end: 20070819
  2. ALOXI [Concomitant]
  3. BENADRYL [Concomitant]
  4. DECADRON [Concomitant]
  5. XANAX [Concomitant]
  6. WELLBUTRIN [Concomitant]

REACTIONS (2)
  - HYPOXIA [None]
  - PULMONARY TOXICITY [None]
